FAERS Safety Report 6968760-3 (Version None)
Quarter: 2010Q3

REPORT INFORMATION
  Report Type: 
  Country: None (occurrence: None)
  Receive Date: 20100901
  Receipt Date: 20100817
  Transmission Date: 20110219
  Serious: Yes (Hospitalization)
  Sender: FDA-Public Use
  Company Number: US-DEXPHARM-20101307

PATIENT
  Sex: Female
  Weight: 61.22 kg

DRUGS (7)
  1. OMEPRAZOLE [Suspect]
     Indication: PROPHYLAXIS AGAINST GASTROINTESTINAL ULCER
     Dosage: 20 MG ONCE A DAY, ORAL
     Route: 048
     Dates: start: 20090217, end: 20100824
  2. PLAVIX [Suspect]
     Indication: CARDIAC DISORDER
     Dosage: 75 MG ONCE A DAY, ORAL
     Route: 048
     Dates: start: 20070801
  3. AZOR (ALPRAZOLAM) [Concomitant]
  4. BYSTOLIC [Concomitant]
  5. NATEGLINIDE [Concomitant]
  6. SIMVASTATIN [Concomitant]
  7. VITAMINS [Concomitant]

REACTIONS (4)
  - CHEST PAIN [None]
  - DEVICE OCCLUSION [None]
  - GASTROINTESTINAL ULCER [None]
  - INHIBITORY DRUG INTERACTION [None]
